FAERS Safety Report 24372299 (Version 1)
Quarter: 2024Q3

REPORT INFORMATION
  Report Type: Spontaneous
  Country: US (occurrence: US)
  Receive Date: 20240927
  Receipt Date: 20240927
  Transmission Date: 20241017
  Serious: No
  Sender: TORRENT
  Company Number: US-TORRENT-00013759

PATIENT
  Age: 25 Year
  Sex: Female

DRUGS (1)
  1. ORMALVI [Suspect]
     Active Substance: DICHLORPHENAMIDE
     Indication: Familial periodic paralysis
     Route: 048
     Dates: start: 20240702

REACTIONS (3)
  - Condition aggravated [Not Recovered/Not Resolved]
  - Familial periodic paralysis [Not Recovered/Not Resolved]
  - Product substitution issue [Unknown]

NARRATIVE: CASE EVENT DATE: 20240816
